FAERS Safety Report 8954808 (Version 1)
Quarter: 2012Q4

REPORT INFORMATION
  Report Type: 
  Country: DE (occurrence: DE)
  Receive Date: 20121207
  Receipt Date: 20121207
  Transmission Date: 20130627
  Serious: Yes (Hospitalization, Other)
  Sender: FDA-Public Use
  Company Number: PHHY2012DE110246

PATIENT
  Age: 52 Year
  Sex: Female

DRUGS (9)
  1. LEPONEX [Suspect]
     Dosage: 600 mg, 1 day
     Route: 048
     Dates: start: 1991, end: 20111031
  2. LEPONEX [Suspect]
     Dosage: 600 mg to 300 mg
     Route: 048
     Dates: start: 20111101, end: 20120314
  3. LEPONEX [Suspect]
     Dosage: 250 mg, 1 day
     Route: 048
     Dates: start: 20120315, end: 20120507
  4. LEPONEX [Suspect]
     Dosage: 200 mg, 1 day
     Route: 048
     Dates: start: 20120508, end: 20120517
  5. LEPONEX [Suspect]
     Dosage: 150 mg, 1 day
     Route: 048
     Dates: start: 20120518, end: 20120521
  6. LEPONEX [Suspect]
     Dosage: 100 mg, 1 day
     Route: 048
     Dates: start: 20120522, end: 20120527
  7. LEPONEX [Suspect]
     Dosage: 25 mg, BID (bis 25 mg)
     Route: 048
     Dates: start: 20120528, end: 20120602
  8. ABILIFY [Concomitant]
     Dosage: 30 mg to 15 mg
     Route: 048
     Dates: start: 200907
  9. ABILIFY [Concomitant]
     Dosage: 15 mg

REACTIONS (6)
  - Psychotic disorder [Recovering/Resolving]
  - Weight decreased [Recovering/Resolving]
  - Bowel movement irregularity [Recovering/Resolving]
  - Constipation [Recovering/Resolving]
  - Faecaloma [Recovering/Resolving]
  - Abdominal discomfort [Recovering/Resolving]
